FAERS Safety Report 8807550 (Version 1)
Quarter: 2012Q4

REPORT INFORMATION
  Report Type: 
  Country: GB (occurrence: GB)
  Receive Date: 20120925
  Receipt Date: 20120925
  Transmission Date: 20130627
  Serious: Yes (Hospitalization, Other)
  Sender: FDA-Public Use
  Company Number: GB-PFIZER INC-2012233417

PATIENT
  Age: 58 Year
  Sex: Male
  Weight: 76.6 kg

DRUGS (8)
  1. SERTRALINE HCL [Suspect]
     Dosage: 100 mg, 1x/day
     Route: 048
  2. SERTRALINE HCL [Suspect]
     Dosage: 150 mg, 1x/day
     Route: 048
     Dates: start: 20120821
  3. SERTRALINE HCL [Suspect]
     Dosage: 200 mg unit dose
     Route: 048
     Dates: start: 20120830, end: 20120903
  4. LORAZEPAM [Concomitant]
     Dosage: 1 mg, 4x/day (as required)
     Route: 048
     Dates: start: 20120828
  5. PROMETHAZINE [Concomitant]
     Dosage: 25 mg, 2x/day
     Route: 048
     Dates: start: 20120828
  6. ZOPICLONE [Concomitant]
     Dosage: 7.5 mg, 1x/day (at night when required)
     Route: 048
     Dates: start: 20120829, end: 20120903
  7. PARACETAMOL [Concomitant]
     Dosage: 1 g, 4x/day (Taken when required)
     Route: 048
     Dates: start: 20120820
  8. TRAZODONE [Concomitant]
     Dosage: 50 mg, 1x/day (one to be taken at night)
     Route: 048
     Dates: start: 20120725, end: 20120806

REACTIONS (6)
  - Anxiety [Recovering/Resolving]
  - Agitation [Recovering/Resolving]
  - Suicidal ideation [Recovering/Resolving]
  - Self-injurious ideation [Recovering/Resolving]
  - Sleep disorder [Recovering/Resolving]
  - Condition aggravated [Recovering/Resolving]
